FAERS Safety Report 6174054-9 (Version None)
Quarter: 2009Q2

REPORT INFORMATION
  Report Type: 
  Country: None (occurrence: None)
  Receive Date: 20090430
  Receipt Date: 20080306
  Transmission Date: 20091009
  Serious: No
  Sender: FDA-Public Use
  Company Number: US-ASTRAZENECA-2008UW04536

PATIENT
  Age: 68 Year
  Sex: Female
  Weight: 83.5 kg

DRUGS (3)
  1. NEXIUM [Suspect]
     Indication: GASTROOESOPHAGEAL REFLUX DISEASE
     Route: 048
  2. VERAPAMIL [Concomitant]
  3. ACCUPRIL [Concomitant]

REACTIONS (2)
  - COUGH [None]
  - THROAT IRRITATION [None]
